FAERS Safety Report 5371221-9 (Version None)
Quarter: 2007Q2

REPORT INFORMATION
  Report Type: 
  Country: None (occurrence: None)
  Receive Date: 20070615
  Receipt Date: 20070323
  Transmission Date: 20071010
  Serious: Yes (Other)
  Sender: FDA-Public Use
  Company Number: 200710706US

PATIENT
  Age: 84 Year
  Sex: Male

DRUGS (11)
  1. LANTUS [Suspect]
     Indication: DIABETES MELLITUS NON-INSULIN-DEPENDENT
     Dosage: 25 U QD
     Dates: start: 20070114
  2. OPTICLIK [Suspect]
     Indication: DIABETES MELLITUS NON-INSULIN-DEPENDENT
  3. GLIMEPIRIDE [Concomitant]
  4. ASPIRIN [Concomitant]
  5. LISINOPRIL [Concomitant]
  6. ATENOLOL [Concomitant]
  7. TERAZOSIN HCL [Concomitant]
  8. BIMATOPROST (LUMIGAN) [Concomitant]
  9. TIMOLOL MALEATE, DORZOLAMIDE HYDROCHLORIDE (COSOPT /01419801/) [Concomitant]
  10. ATROVASTATIN CALCIUM (LIPITOR) [Concomitant]
  11. ERGOCALCIFEROL, ASCORBIC ACID, FOLIC CID, THIAMINE HYDROCHLORIDE, RETI [Concomitant]

REACTIONS (5)
  - BLOOD GLUCOSE INCREASED [None]
  - COLD SWEAT [None]
  - DRUG INEFFECTIVE [None]
  - HYPOGLYCAEMIA [None]
  - OVERDOSE [None]
